FAERS Safety Report 10048205 (Version 1)
Quarter: 2014Q1

REPORT INFORMATION
  Report Type: Spontaneous
  Country: US (occurrence: None)
  Receive Date: 20140306
  Receipt Date: 20140306
  Transmission Date: 20141002
  Serious: Yes (Hospitalization)
  Sender: FDA-Public Use
  Company Number: 163-21880-13094573

PATIENT
  Age: 66 Year
  Sex: Female
  Weight: 108.1 kg

DRUGS (5)
  1. REVLIMID [Suspect]
     Indication: PLASMA CELL MYELOMA
     Dosage: 21 IN 21 D
     Route: 048
     Dates: start: 201212, end: 20130927
  2. DEXAMETHADONE (DEXAMETHASONE) (CAPSULES) [Concomitant]
  3. SPIRONOLACTONE (SPIRONOLACTONE) [Concomitant]
  4. VITAMIN D (ERGOCALCIFEROL) [Concomitant]
  5. ZYRTEC ALLERGY (CETIRIZINE HYDROCHLORIDE) [Concomitant]

REACTIONS (2)
  - Atrial fibrillation [None]
  - Tachycardia [None]
